FAERS Safety Report 9230550 (Version 2)
Quarter: 2013Q2

REPORT INFORMATION
  Report Type: Spontaneous
  Country: US (occurrence: US)
  Receive Date: 20130415
  Receipt Date: 20130422
  Transmission Date: 20140414
  Serious: Yes (Hospitalization)
  Sender: FDA-Public Use
  Company Number: US-009507513-1304USA006354

PATIENT
  Sex: 0

DRUGS (1)
  1. SAPHRIS [Suspect]

REACTIONS (1)
  - Adverse event [Unknown]
